FAERS Safety Report 9012113 (Version 4)
Quarter: 2016Q4

REPORT INFORMATION
  Report Type: Report from Study
  Country: AR (occurrence: AR)
  Receive Date: 20130114
  Receipt Date: 20161021
  Transmission Date: 20170207
  Serious: Yes (Life-Threatening, Hospitalization, Other)
  Sender: FDA-Public Use
  Company Number: AR-ROCHE-1178310

PATIENT
  Age: 61 Year
  Sex: Male
  Weight: 160 kg

DRUGS (2)
  1. XOLAIR [Suspect]
     Active Substance: OMALIZUMAB
     Route: 058
     Dates: start: 2014, end: 2016
  2. XOLAIR [Suspect]
     Active Substance: OMALIZUMAB
     Indication: ASTHMA
     Dosage: 5 AMPOULES (150 MG)
     Route: 058
     Dates: start: 2010, end: 201211

REACTIONS (17)
  - Pneumonia [Recovering/Resolving]
  - Drug ineffective [Unknown]
  - Fall [Unknown]
  - Asthma [Recovering/Resolving]
  - Cough [Recovering/Resolving]
  - Feeling abnormal [Not Recovered/Not Resolved]
  - Respiratory disorder [Unknown]
  - Weight decreased [Unknown]
  - Traumatic lung injury [Not Recovered/Not Resolved]
  - Insomnia [Not Recovered/Not Resolved]
  - Haemoptysis [Not Recovered/Not Resolved]
  - Apparent death [Not Recovered/Not Resolved]
  - Empyema [Recovering/Resolving]
  - Weight increased [Not Recovered/Not Resolved]
  - Productive cough [Not Recovered/Not Resolved]
  - Pulmonary pain [Recovering/Resolving]
  - Dyspnoea [Not Recovered/Not Resolved]

NARRATIVE: CASE EVENT DATE: 201302
